FAERS Safety Report 22179056 (Version 2)
Quarter: 2023Q2

REPORT INFORMATION
  Report Type: Spontaneous
  Country: HR (occurrence: HR)
  Receive Date: 20230406
  Receipt Date: 20230407
  Transmission Date: 20230722
  Serious: Yes (Hospitalization)
  Sender: FDA-Public Use
  Company Number: None

PATIENT
  Age: 41 Year
  Sex: Female
  Weight: 73 kg

DRUGS (3)
  1. XARELTO [Suspect]
     Active Substance: RIVAROXABAN
     Indication: Pulmonary embolism
     Dosage: 15 MG, BID
     Route: 048
     Dates: start: 20230302, end: 20230303
  2. XARELTO [Suspect]
     Active Substance: RIVAROXABAN
     Indication: Embolic pneumonia
     Route: 048
  3. BISOPROLOL FUMARATE [Concomitant]
     Active Substance: BISOPROLOL FUMARATE
     Indication: Tachycardia
     Dosage: 1.25 MG, QD
     Route: 048
     Dates: start: 20230225, end: 20230303

REACTIONS (6)
  - Hemiparaesthesia [Recovered/Resolved]
  - Paraesthesia oral [Recovered/Resolved]
  - Dysarthria [Recovered/Resolved]
  - Paraesthesia oral [Recovered/Resolved]
  - Headache [Recovered/Resolved]
  - Nausea [Recovered/Resolved]

NARRATIVE: CASE EVENT DATE: 20230303
